FAERS Safety Report 7554482-7 (Version None)
Quarter: 2011Q2

REPORT INFORMATION
  Report Type: 
  Country: None (occurrence: None)
  Receive Date: 20110617
  Receipt Date: 20110607
  Transmission Date: 20111010
  Serious: Yes (Other)
  Sender: FDA-Public Use
  Company Number: A0931679A

PATIENT
  Age: 27 Year
  Sex: Female

DRUGS (4)
  1. REYATAZ [Suspect]
     Indication: ANTIVIRAL TREATMENT
     Route: 048
     Dates: start: 20101217
  2. COMBIVIR [Suspect]
     Indication: ANTIVIRAL TREATMENT
     Route: 048
  3. NORVIR [Suspect]
     Indication: ANTIVIRAL TREATMENT
     Route: 048
  4. KALETRA [Suspect]
     Indication: ANTIVIRAL TREATMENT
     Route: 048

REACTIONS (3)
  - BLOOD BILIRUBIN ABNORMAL [None]
  - RASH [None]
  - DRUG EXPOSURE DURING PREGNANCY [None]
